FAERS Safety Report 5177149-1 (Version None)
Quarter: 2006Q4

REPORT INFORMATION
  Report Type: 
  Country: None (occurrence: None)
  Receive Date: 20061218
  Receipt Date: 20061017
  Transmission Date: 20070319
  Serious: Yes (Life-Threatening, Hospitalization)
  Sender: FDA-Public Use
  Company Number: KR-ROCHE-467484

PATIENT
  Age: 67 Year
  Sex: Male
  Weight: 57 kg

DRUGS (3)
  1. CAPECITABINE [Suspect]
     Indication: GASTRIC CANCER
     Dosage: TAKEN PM ON DAY 1 UNTIL AM ON 15 OF A THREE WEEK CYCLE TWICE DAILY.
     Route: 048
     Dates: start: 20060831
  2. CISPLATIN [Suspect]
     Indication: GASTRIC CANCER
     Route: 042
     Dates: start: 20060831
  3. HEMOCONTIN [Concomitant]
     Dates: start: 20061016

REACTIONS (1)
  - SEPTIC SHOCK [None]
